FAERS Safety Report 4921440-8 (Version None)
Quarter: 2006Q1

REPORT INFORMATION
  Report Type: 
  Country: None (occurrence: None)
  Receive Date: 20060221
  Receipt Date: 20060208
  Transmission Date: 20060701
  Serious: Yes (Death, Hospitalization)
  Sender: FDA-Public Use
  Company Number: CHNY2006FR00713

PATIENT
  Age: 87 Year
  Sex: Female
  Weight: 56 kg

DRUGS (9)
  1. SCOPODERM TTS (NCH) (HYOSCINE HYDROBROMIDE)TRANS-THERAPEUTIC SYSTEM [Suspect]
     Dosage: 1.5 MG, Q72H, TRANSDERMAL
     Route: 062
  2. PROPOFAN (CAFFEINE, DEXTREOPROPYPHENE,  PARACETAMOL) [Suspect]
     Dosage: 1 DF , TID, ORAL
     Route: 048
  3. TIAPRIDAL (TIAPRIDE) [Suspect]
     Dosage: 50 MG, TID, ORAL
     Route: 048
     Dates: start: 20051206, end: 20060112
  4. INDAPAMIDE [Suspect]
     Dosage: 1.5 MG, QD, ORAL
     Route: 048
  5. COVERSYL (PERINDOPRIL) [Suspect]
     Indication: HYPERTENSION
     Dosage: 1 DF, QD, ORAL
     Route: 048
  6. RANITIDINE HYDROCHLORIDE [Suspect]
     Dosage: 1 DF, QD, ORAL
     Route: 048
  7. ASPIRIN [Concomitant]
  8. LANSOYL (PARAFFIN, LIQUID) [Concomitant]
  9. MOVICOL (MACROGOL, POTASSIUM CHLORIDE, SODIUM BICARBONATE, SODIUM CHLO [Concomitant]

REACTIONS (7)
  - APHASIA [None]
  - BLOOD PRESSURE SYSTOLIC INCREASED [None]
  - BLOOD SODIUM DECREASED [None]
  - BODY TEMPERATURE INCREASED [None]
  - OXYGEN SATURATION DECREASED [None]
  - PERIPHERAL COLDNESS [None]
  - SOMNOLENCE [None]
